FAERS Safety Report 7561429-6 (Version None)
Quarter: 2011Q2

REPORT INFORMATION
  Report Type: 
  Country: None (occurrence: None)
  Receive Date: 20110621
  Receipt Date: 20100603
  Transmission Date: 20111010
  Serious: No
  Sender: FDA-Public Use
  Company Number: US-ASTRAZENECA-2010SE25722

PATIENT
  Age: 83 Year
  Sex: Female
  Weight: 72.6 kg

DRUGS (2)
  1. PULMICORT FLEXHALER [Suspect]
     Indication: ASTHMA
     Route: 055
     Dates: start: 20050101
  2. PRILOSEC [Concomitant]

REACTIONS (3)
  - TREMOR [None]
  - MUCOSAL DISCOLOURATION [None]
  - NAUSEA [None]
